FAERS Safety Report 7236646-5 (Version None)
Quarter: 2011Q1

REPORT INFORMATION
  Report Type: 
  Country: None (occurrence: None)
  Receive Date: 20110120
  Receipt Date: 20110114
  Transmission Date: 20110831
  Serious: Yes (Death)
  Sender: FDA-Public Use
  Company Number: GB-PFIZER INC-2011004396

PATIENT
  Age: 25 Year
  Sex: Male

DRUGS (18)
  1. ETHAMBUTOL [Concomitant]
     Indication: TUBERCULOSIS
     Route: 042
  2. PROTHIONAMIDE [Concomitant]
     Indication: TUBERCULOSIS
     Route: 042
  3. ETHAMBUTOL [Concomitant]
     Indication: ANTIBIOTIC PROPHYLAXIS
  4. RITONAVIR [Suspect]
     Indication: HIV INFECTION
  5. LINEZOLID [Concomitant]
     Indication: TUBERCULOSIS
  6. TRUVADA [Concomitant]
     Indication: HIV INFECTION
  7. HEPARIN [Concomitant]
  8. PYRAZINAMIDE [Concomitant]
     Indication: ANTIBIOTIC PROPHYLAXIS
  9. ONDANSETRON [Suspect]
  10. MOXIFLOXACIN [Suspect]
     Indication: TUBERCULOSIS
  11. DARUNAVIR [Concomitant]
     Indication: HIV INFECTION
  12. AMIKACIN [Concomitant]
     Indication: TUBERCULOSIS
     Route: 042
  13. EFAVIRENZ [Concomitant]
     Indication: HIV INFECTION
  14. PYRAZINAMIDE [Concomitant]
     Indication: TUBERCULOSIS
     Route: 042
  15. VALGANCICLOVIR [Concomitant]
  16. FLUCONAZOLE [Suspect]
     Indication: ORAL CANDIDIASIS
  17. CYCLOSERINE [Concomitant]
     Indication: TUBERCULOSIS
  18. CLOFAZIMINE [Concomitant]

REACTIONS (2)
  - ARRHYTHMIA [None]
  - SUDDEN DEATH [None]
